FAERS Safety Report 4531363-4 (Version None)
Quarter: 2004Q4

REPORT INFORMATION
  Report Type: 
  Country: None (occurrence: None)
  Receive Date: 20041206
  Receipt Date: 20041001
  Transmission Date: 20050328
  Serious: No
  Sender: FDA-Public Use
  Company Number: USA040978511

PATIENT
  Sex: Male

DRUGS (8)
  1. CYMBALTA [Suspect]
     Dosage: 30 MG IN THE MORNING
     Dates: start: 20040914
  2. SERZONE [Concomitant]
  3. AMBIEN [Concomitant]
  4. VALIUM [Concomitant]
  5. MIRAPEX (MIRAPEX) [Concomitant]
  6. PLAVIX [Concomitant]
  7. LIPITOR [Concomitant]
  8. MINOCYCLINE HCL [Concomitant]

REACTIONS (2)
  - ABDOMINAL PAIN UPPER [None]
  - NAUSEA [None]
